FAERS Safety Report 25618658 (Version 1)
Quarter: 2025Q3

REPORT INFORMATION
  Report Type: Spontaneous
  Country: US (occurrence: US)
  Receive Date: 20250729
  Receipt Date: 20250729
  Transmission Date: 20251021
  Serious: Yes (Other)
  Sender: AMGEN
  Company Number: US-AMGEN-USASP2025145104

PATIENT

DRUGS (2)
  1. RITUXIMAB [Suspect]
     Active Substance: RITUXIMAB
     Indication: Product used for unknown indication
     Route: 065
  2. INFLIXIMAB [Suspect]
     Active Substance: INFLIXIMAB
     Indication: Product used for unknown indication
     Route: 065

REACTIONS (10)
  - Optic ischaemic neuropathy [Unknown]
  - Infusion related reaction [Unknown]
  - Urticaria [Unknown]
  - Chills [Unknown]
  - Flushing [Unknown]
  - Pruritus [Unknown]
  - Headache [Unknown]
  - Nausea [Unknown]
  - Adverse reaction [Unknown]
  - Fatigue [Unknown]
